FAERS Safety Report 13402947 (Version 1)
Quarter: 2017Q2

REPORT INFORMATION
  Report Type: Spontaneous
  Country: US (occurrence: US)
  Receive Date: 20170404
  Receipt Date: 20170404
  Transmission Date: 20170830
  Serious: No
  Sender: FDA-Public Use
  Company Number: US-ROCHE-1835696

PATIENT
  Sex: Female

DRUGS (2)
  1. TEMODAR [Concomitant]
     Active Substance: TEMOZOLOMIDE
     Indication: GLIOBLASTOMA
     Dosage: 5 DAYS OF DOUBLE DOSE AND 23 DAYS OFF
     Route: 065
  2. AVASTIN [Suspect]
     Active Substance: BEVACIZUMAB
     Indication: GLIOBLASTOMA
     Route: 042

REACTIONS (2)
  - Visual impairment [Unknown]
  - Amnesia [Unknown]
